FAERS Safety Report 16949684 (Version 1)
Quarter: 2019Q4

REPORT INFORMATION
  Report Type: Report from Study
  Country: IT (occurrence: IT)
  Receive Date: 20191023
  Receipt Date: 20191023
  Transmission Date: 20200122
  Serious: Yes (Hospitalization)
  Sender: FDA-Public Use
  Company Number: IT-TEVA-2019-IT-1125032

PATIENT
  Age: 30 Year
  Sex: Female

DRUGS (4)
  1. DULOXETINE HYDROCHLORIDE. [Concomitant]
     Active Substance: DULOXETINE HYDROCHLORIDE
     Dosage: 30MG/ DAY
     Dates: start: 20190528
  2. QUETIAPINE. [Suspect]
     Active Substance: QUETIAPINE
     Indication: SUBSTANCE ABUSE
     Dosage: 3G
     Route: 048
     Dates: start: 20190531, end: 20190531
  3. LITHIUM. [Concomitant]
     Active Substance: LITHIUM
     Dosage: 600MG/ DAY
     Dates: start: 20190528
  4. BROTIZOLAM [Concomitant]
     Active Substance: BROTIZOLAM
     Dosage: 1DF/ DAY
     Route: 048
     Dates: start: 20190528

REACTIONS (2)
  - Sopor [Unknown]
  - Substance abuse [Unknown]

NARRATIVE: CASE EVENT DATE: 20190531
